FAERS Safety Report 7606849-6 (Version None)
Quarter: 2011Q3

REPORT INFORMATION
  Report Type: 
  Country: None (occurrence: None)
  Receive Date: 20110713
  Receipt Date: 20110707
  Transmission Date: 20111222
  Serious: Yes (Hospitalization)
  Sender: FDA-Public Use
  Company Number: US-GLAXOSMITHKLINE-A0935349A

PATIENT
  Age: 52 Year
  Sex: Male

DRUGS (4)
  1. BLOOD PRESSURE MEDICATION [Concomitant]
  2. AVANDIA [Suspect]
     Indication: TYPE 2 DIABETES MELLITUS
     Route: 048
  3. ASPIRIN [Concomitant]
  4. PAIN MEDICATION [Concomitant]

REACTIONS (2)
  - MYOCARDIAL INFARCTION [None]
  - WEIGHT INCREASED [None]
